FAERS Safety Report 7537848-0 (Version None)
Quarter: 2011Q2

REPORT INFORMATION
  Report Type: 
  Country: None (occurrence: None)
  Receive Date: 20110609
  Receipt Date: 20110601
  Transmission Date: 20111010
  Serious: Yes (Congenital Anomaly, Other)
  Sender: FDA-Public Use
  Company Number: US-ABBOTT-11P-163-0697779-00

PATIENT
  Sex: Female
  Weight: 2.08 kg

DRUGS (1)
  1. RITONAVIR [Suspect]
     Indication: DRUG EXPOSURE DURING PREGNANCY
     Route: 064

REACTIONS (7)
  - ATRIAL SEPTAL DEFECT [None]
  - PREMATURE BABY [None]
  - CARDIAC SEPTAL DEFECT RESIDUAL SHUNT [None]
  - SHUNT BLOOD FLOW EXCESSIVE [None]
  - VENTRICULAR SEPTAL DEFECT [None]
  - LEFT ATRIAL DILATATION [None]
  - PATENT DUCTUS ARTERIOSUS [None]
